FAERS Safety Report 11592694 (Version 1)
Quarter: 2015Q4

REPORT INFORMATION
  Report Type: Report from Study
  Country: JP (occurrence: JP)
  Receive Date: 20151005
  Receipt Date: 20151005
  Transmission Date: 20160304
  Serious: Yes (Hospitalization)
  Sender: FDA-Public Use
  Company Number: JP-EISAI MEDICAL RESEARCH-EC-2015-010862

PATIENT
  Age: 93 Year
  Sex: Female

DRUGS (16)
  1. FRANDOL [Concomitant]
     Active Substance: ISOSORBIDE DINITRATE
  2. HIRUDOID [Concomitant]
     Active Substance: GLYCOSAMINOGLYCANS
  3. MAGMITT [Concomitant]
     Active Substance: MAGNESIUM OXIDE
  4. LAMISIL [Concomitant]
     Active Substance: TERBINAFINE HYDROCHLORIDE
  5. CELECOX [Suspect]
     Active Substance: CELECOXIB
     Indication: PRODUCT USED FOR UNKNOWN INDICATION
     Route: 048
     Dates: end: 20140424
  6. LANSOPRAZOLE. [Concomitant]
     Active Substance: LANSOPRAZOLE
  7. ARICEPT [Suspect]
     Active Substance: DONEPEZIL HYDROCHLORIDE
     Indication: DEMENTIA ALZHEIMER^S TYPE
     Route: 048
     Dates: start: 20131025, end: 20131106
  8. DEPAS [Concomitant]
     Active Substance: ETIZOLAM
  9. MUCOSTA [Concomitant]
     Active Substance: REBAMIPIDE
  10. ARTIFICIAL TEAR MYTEAR [Concomitant]
  11. BESOFTEN [Concomitant]
     Active Substance: SODIUM ALGINATE
  12. TSUMURA SHAKUYAKUKANZOTO [Concomitant]
     Active Substance: HERBALS
  13. BAYASPIRIN [Concomitant]
     Active Substance: ASPIRIN
  14. LEVOFLOXACIN HEMIHYDRATE [Concomitant]
     Active Substance: LEVOFLOXACIN
  15. ARICEPT [Suspect]
     Active Substance: DONEPEZIL HYDROCHLORIDE
     Route: 048
     Dates: start: 20131107
  16. RESTAMIN [Concomitant]
     Active Substance: DIPHENHYDRAMINE

REACTIONS (1)
  - Gastric ulcer haemorrhage [Recovered/Resolved]

NARRATIVE: CASE EVENT DATE: 20140410
